FAERS Safety Report 9323972 (Version 1)
Quarter: 2013Q2

REPORT INFORMATION
  Report Type: Spontaneous
  Country: US (occurrence: US)
  Receive Date: 20130603
  Receipt Date: 20130603
  Transmission Date: 20140414
  Serious: No
  Sender: FDA-Public Use
  Company Number: US-009507513-1305USA016884

PATIENT
  Sex: Female

DRUGS (6)
  1. PEG-INTRON [Suspect]
     Indication: HEPATITIS C
     Dosage: 120 MICROGRAMS/0.5 ML, QW
     Route: 058
  2. REBETOL [Suspect]
     Indication: HEPATITIS C
     Dosage: UNK
  3. PROVENTIL [Concomitant]
     Route: 055
  4. LISINOPRIL [Concomitant]
  5. OMEPRAZOLE [Concomitant]
  6. TRAMADOL HYDROCHLORIDE [Concomitant]

REACTIONS (4)
  - Hepatitis C [Unknown]
  - Influenza like illness [Recovered/Resolved]
  - Decreased appetite [Recovered/Resolved]
  - Depression [Recovered/Resolved]
